FAERS Safety Report 26059714 (Version 1)
Quarter: 2025Q4

REPORT INFORMATION
  Report Type: 
  Country: US (occurrence: US)
  Receive Date: 20251118
  Receipt Date: 20251118
  Transmission Date: 20260117
  Serious: Yes (Hospitalization, Other)
  Sender: CB FLEET
  Company Number: US-PRESTIGE-202511-US-003626

PATIENT
  Age: 13 Year
  Sex: Female

DRUGS (4)
  1. DIPHENHYDRAMINE HYDROCHLORIDE [Suspect]
     Active Substance: DIPHENHYDRAMINE HYDROCHLORIDE
     Indication: Product used for unknown indication
     Dosage: UNKNOWN DOSE
  2. ASPIRIN [Suspect]
     Active Substance: ASPIRIN
     Route: 048
  3. ACARBOSE [Suspect]
     Active Substance: ACARBOSE
  4. SERTRALINE [Suspect]
     Active Substance: SERTRALINE HYDROCHLORIDE

REACTIONS (6)
  - Anticholinergic syndrome [Recovered/Resolved]
  - Hallucination [Recovered/Resolved]
  - Mucosal dryness [Recovered/Resolved]
  - Skin warm [Recovered/Resolved]
  - Agitation [Recovered/Resolved]
  - Heart rate increased [Recovered/Resolved]
